FAERS Safety Report 6244979-4 (Version None)
Quarter: 2009Q2

REPORT INFORMATION
  Report Type: 
  Country: None (occurrence: None)
  Receive Date: 20090619
  Receipt Date: 20090302
  Transmission Date: 20091009
  Serious: No
  Sender: FDA-Public Use
  Company Number: ALL1-2009-00554

PATIENT
  Age: 9 Year
  Sex: Female
  Weight: 21.3 kg

DRUGS (2)
  1. VYVANSE [Suspect]
     Indication: ATTENTION DEFICIT/HYPERACTIVITY DISORDER
     Dosage: 50 MG, 1X/DAY:QD, ORAL
     Route: 048
     Dates: start: 20090201
  2. FOLIC ACID [Concomitant]

REACTIONS (4)
  - AGGRESSION [None]
  - IRRITABILITY [None]
  - NEGATIVISM [None]
  - SCREAMING [None]
